FAERS Safety Report 5909481-5 (Version None)
Quarter: 2008Q4

REPORT INFORMATION
  Report Type: 
  Country: None (occurrence: None)
  Receive Date: 20081001
  Receipt Date: 20080916
  Transmission Date: 20090506
  Serious: Yes (Hospitalization)
  Sender: FDA-Public Use
  Company Number: ADE2008-0305

PATIENT
  Age: 69 Year
  Sex: Male

DRUGS (2)
  1. AMOXICILLIN [Suspect]
     Indication: URINARY TRACT INFECTION
     Dosage: IV
     Route: 042
     Dates: start: 20030101
  2. AMOXICILLIN [Suspect]
     Indication: URINARY TRACT INFECTION
     Dosage: I1 GM, V
     Route: 042
     Dates: start: 20060101

REACTIONS (18)
  - ACIDOSIS HYPERCHLORAEMIC [None]
  - ALLERGY TEST POSITIVE [None]
  - ANGINA PECTORIS [None]
  - ARTERIOSPASM CORONARY [None]
  - BACTERIURIA [None]
  - CHEST PAIN [None]
  - DISCOMFORT [None]
  - DYSPNOEA [None]
  - DYSURIA [None]
  - ELECTROCARDIOGRAM ST SEGMENT ELEVATION [None]
  - EPIGASTRIC DISCOMFORT [None]
  - HYPERHIDROSIS [None]
  - HYPOTENSION [None]
  - LEUKOCYTOSIS [None]
  - METABOLIC ACIDOSIS [None]
  - NEUTROPHILIA [None]
  - PYREXIA [None]
  - PYURIA [None]
